FAERS Safety Report 5668678-2 (Version None)
Quarter: 2008Q1

REPORT INFORMATION
  Report Type: 
  Country: None (occurrence: None)
  Receive Date: 20080312
  Receipt Date: 20080306
  Transmission Date: 20080703
  Serious: Yes (Death)
  Sender: FDA-Public Use
  Company Number: E2020-02407-SPO-JP

PATIENT
  Age: 70 Year
  Sex: Female

DRUGS (1)
  1. ARICEPT [Suspect]
     Indication: DEMENTIA
     Dosage: FINE GRANULES, 1 MG

REACTIONS (1)
  - SUDDEN DEATH [None]
